FAERS Safety Report 7415970-7 (Version None)
Quarter: 2011Q2

REPORT INFORMATION
  Report Type: 
  Country: None (occurrence: None)
  Receive Date: 20110414
  Receipt Date: 20110410
  Transmission Date: 20111010
  Serious: Yes (Hospitalization)
  Sender: FDA-Public Use
  Company Number: US-SANOFI-AVENTIS-2011SA022120

PATIENT
  Age: 20 Year
  Sex: Female

DRUGS (1)
  1. LANTUS [Suspect]
     Dosage: 35-40 UNITS ONCE AT NIGHT
     Route: 058
     Dates: start: 20000101

REACTIONS (3)
  - HEART RATE INCREASED [None]
  - BLOOD GLUCOSE INCREASED [None]
  - STAPHYLOCOCCAL INFECTION [None]
